FAERS Safety Report 25383658 (Version 2)
Quarter: 2025Q3

REPORT INFORMATION
  Report Type: Spontaneous
  Country: PE (occurrence: PE)
  Receive Date: 20250602
  Receipt Date: 20250728
  Transmission Date: 20251020
  Serious: Yes (Hospitalization, Other)
  Sender: AMGEN
  Company Number: PE-PFIZER INC-PV202500064350

PATIENT
  Age: 72 Year
  Sex: Female

DRUGS (1)
  1. ENBREL [Suspect]
     Active Substance: ETANERCEPT
     Indication: Product used for unknown indication
     Route: 058
     Dates: start: 202404, end: 202501

REACTIONS (6)
  - Tendon rupture [Unknown]
  - Arthritis [Unknown]
  - Sensitivity to weather change [Unknown]
  - Memory impairment [Unknown]
  - Skin atrophy [Unknown]
  - Pain in extremity [Unknown]

NARRATIVE: CASE EVENT DATE: 20250501
